FAERS Safety Report 6435877-1 (Version None)
Quarter: 2009Q4

REPORT INFORMATION
  Report Type: 
  Country: None (occurrence: None)
  Receive Date: 20091109
  Receipt Date: 20090416
  Transmission Date: 20100525
  Serious: Yes (Other)
  Sender: FDA-Public Use
  Company Number: 2009RR-23521

PATIENT
  Age: 62 Year
  Sex: Male

DRUGS (4)
  1. GABAPENTIN [Suspect]
  2. BORTEZOMIB [Suspect]
  3. CYCLOPHOSPHAMIDE [Concomitant]
  4. DEXAMETHASONE TAB [Concomitant]

REACTIONS (1)
  - NEUROPATHY PERIPHERAL [None]
